FAERS Safety Report 9348378 (Version 1)
Quarter: 2013Q2

REPORT INFORMATION
  Report Type: Not Available
  Country: SE (occurrence: SE)
  Receive Date: 20130614
  Receipt Date: 20130614
  Transmission Date: 20140414
  Serious: Yes (Hospitalization)
  Sender: FDA-Public Use
  Company Number: SE-NAPPMUNDI-GBR-2013-0014518

PATIENT
  Age: 90 Year
  Sex: Male

DRUGS (2)
  1. DOLCONTIN [Suspect]
     Indication: PRODUCT USED FOR UNKNOWN INDICATION
     Route: 048
  2. ELIGARD [Concomitant]
     Route: 042

REACTIONS (5)
  - Incorrect dose administered [Unknown]
  - Fall [Unknown]
  - Dysarthria [Unknown]
  - Gait disturbance [Unknown]
  - Confusional state [Unknown]
